FAERS Safety Report 17398254 (Version 1)
Quarter: 2020Q1

REPORT INFORMATION
  Report Type: Spontaneous
  Country: US (occurrence: US)
  Receive Date: 20200210
  Receipt Date: 20200210
  Transmission Date: 20200409
  Serious: Yes (Hospitalization)
  Sender: FDA-Public Use
  Company Number: US-MYLANLABS-2020M1007350

PATIENT
  Age: 4 Day
  Sex: Female
  Weight: 1.04 kg

DRUGS (4)
  1. MORPHINE [Concomitant]
     Active Substance: MORPHINE
     Indication: PAIN
     Dosage: EVERY FOUR-SIX HOURS
     Route: 042
  2. MORPHINE [Concomitant]
     Active Substance: MORPHINE
     Indication: IRRITABILITY
     Dosage: 5 MICROGRAM/KILOGRAM, QH
     Route: 042
  3. VECURONIUM [Suspect]
     Active Substance: VECURONIUM BROMIDE
     Indication: DRUG THERAPY
     Dosage: VECURONIUM-BROMIDE 0.1 MG/KG HAD BEEN ORDERED EVERY FOUR HOURS AS NEEDED.
     Route: 065
  4. CISATRACURIUM. [Suspect]
     Active Substance: CISATRACURIUM
     Indication: PRODUCT USED FOR UNKNOWN INDICATION
     Dosage: 0.5 MG/0.25 ML (ERRONEOUSLY RECEIVED CISATRACURIUM BESILATE INSTEAD OF VECURONIUM BROMIDE)
     Route: 065

REACTIONS (3)
  - Product packaging confusion [Unknown]
  - Wrong product administered [Unknown]
  - Product dispensing error [Unknown]
